FAERS Safety Report 20551737 (Version 1)
Quarter: 2022Q1

REPORT INFORMATION
  Report Type: Spontaneous
  Country: US (occurrence: US)
  Receive Date: 20220304
  Receipt Date: 20220304
  Transmission Date: 20220423
  Serious: Yes (Other)
  Sender: FDA-Public Use
  Company Number: US-PFIZER INC-202200106571

PATIENT
  Age: 56 Year
  Sex: Female
  Weight: 105.7 kg

DRUGS (6)
  1. XELJANZ XR [Suspect]
     Active Substance: TOFACITINIB CITRATE
     Indication: Rheumatoid arthritis
     Dosage: 11 MG, 1X/DAY(AM)
     Dates: start: 20211210
  2. XELJANZ XR [Suspect]
     Active Substance: TOFACITINIB CITRATE
     Indication: Psoriatic arthropathy
  3. XELJANZ XR [Suspect]
     Active Substance: TOFACITINIB CITRATE
     Indication: Spinal osteoarthritis
  4. XELJANZ XR [Suspect]
     Active Substance: TOFACITINIB CITRATE
     Indication: Ankylosing spondylitis
  5. XELJANZ XR [Suspect]
     Active Substance: TOFACITINIB CITRATE
     Indication: Thoracic outlet syndrome
  6. LEFLUNOMIDE [Concomitant]
     Active Substance: LEFLUNOMIDE

REACTIONS (6)
  - Spinal operation [Unknown]
  - Spinal cord injury [Unknown]
  - Blood pressure decreased [Unknown]
  - Lethargy [Unknown]
  - Peripheral swelling [Unknown]
  - Inflammation [Unknown]

NARRATIVE: CASE EVENT DATE: 20211210
